FAERS Safety Report 4472754-X (Version None)
Quarter: 2004Q4

REPORT INFORMATION
  Report Type: 
  Country: None (occurrence: None)
  Receive Date: 20041012
  Receipt Date: 20041012
  Transmission Date: 20050328
  Serious: Yes (Hospitalization)
  Sender: FDA-Public Use
  Company Number: None

PATIENT
  Age: 50 Year
  Sex: Female

DRUGS (2)
  1. PROMETHAZINE [Suspect]
  2. METHYLPREDNISOLONE [Suspect]

REACTIONS (3)
  - EXTRAVASATION [None]
  - PERIPHERAL COLDNESS [None]
  - SKIN DISCOLOURATION [None]
